FAERS Safety Report 10046652 (Version 3)
Quarter: 2014Q2

REPORT INFORMATION
  Report Type: Report from Study
  Country: AU (occurrence: AU)
  Receive Date: 20140331
  Receipt Date: 20140413
  Transmission Date: 20141212
  Serious: Yes (Other)
  Sender: FDA-Public Use
  Company Number: AU-US-EMD SERONO, INC.-7277987

PATIENT
  Age: 26 Year
  Sex: Female
  Weight: 67 kg

DRUGS (1)
  1. REBIF [Suspect]
     Indication: MULTIPLE SCLEROSIS
     Route: 058
     Dates: start: 20131220

REACTIONS (11)
  - Pyelonephritis [Recovered/Resolved]
  - Tearfulness [Recovering/Resolving]
  - Malaise [Unknown]
  - Somnolence [Unknown]
  - Frustration [Unknown]
  - Emotional distress [Unknown]
  - Impaired work ability [Unknown]
  - Oral herpes [Unknown]
  - Depressed mood [Recovering/Resolving]
  - Fatigue [Unknown]
  - Influenza like illness [Not Recovered/Not Resolved]
